FAERS Safety Report 9725587 (Version 2)
Quarter: 2013Q4

REPORT INFORMATION
  Report Type: Report from Study
  Country: GR (occurrence: GR)
  Receive Date: 20131203
  Receipt Date: 20131203
  Transmission Date: 20140711
  Serious: Yes (Life-Threatening, Other)
  Sender: FDA-Public Use
  Company Number: GR-ABBVIE-13P-066-1137402-00

PATIENT
  Age: 39 Year
  Sex: Female
  Weight: 86 kg

DRUGS (2)
  1. HUMIRA [Suspect]
     Indication: PSORIATIC ARTHROPATHY
     Route: 058
     Dates: start: 20120216, end: 20130823
  2. CYCLOSPORINE [Concomitant]
     Indication: PSORIASIS
     Route: 048
     Dates: start: 20110601

REACTIONS (3)
  - Acoustic neuroma [Not Recovered/Not Resolved]
  - VIIth nerve injury [Unknown]
  - Choroid plexus papilloma [Recovered/Resolved]
